FAERS Safety Report 9254938 (Version 1)
Quarter: 2013Q2

REPORT INFORMATION
  Report Type: Spontaneous
  Country: FR (occurrence: FR)
  Receive Date: 20130425
  Receipt Date: 20130425
  Transmission Date: 20140414
  Serious: Yes (Other)
  Sender: FDA-Public Use
  Company Number: FR-JNJFOC-20130409753

PATIENT
  Age: 21 Year
  Sex: Female

DRUGS (2)
  1. XEPLION [Suspect]
     Indication: SCHIZOPHRENIA
     Dosage: FIRST INITIATION DOSE,??SITE OF INJECTION: DELTOID MUSCLE
     Route: 030
     Dates: start: 201304
  2. XEPLION [Suspect]
     Indication: SCHIZOPHRENIA
     Dosage: SECOND INITIATION DOSE
     Route: 030
     Dates: start: 201304

REACTIONS (3)
  - Dissociation [Recovered/Resolved]
  - Hallucination [Recovered/Resolved]
  - Inappropriate schedule of drug administration [Recovered/Resolved]
